FAERS Safety Report 8529632-6 (Version None)
Quarter: 2012Q3

REPORT INFORMATION
  Report Type: 
  Country: None (occurrence: None)
  Receive Date: 20120710
  Receipt Date: 20120628
  Transmission Date: 20120928
  Serious: Yes (Other)
  Sender: FDA-Public Use
  Company Number: AUR-APL-2012-02825

PATIENT
  Age: 72 Year
  Sex: Male
  Weight: 81 kg

DRUGS (8)
  1. AMLODIPINE [Concomitant]
  2. SIMVASTATIN [Suspect]
     Indication: PRODUCT USED FOR UNKNOWN INDICATION
     Dates: start: 20120309
  3. RAMIPRIL [Concomitant]
  4. ASPIRIN [Concomitant]
  5. ACETAMINOPHEN [Concomitant]
  6. BENDROFLUMETHIAZIDE (BENDROFLUMETHIAZIDE) [Concomitant]
  7. BISOPROLOL FUMARATE [Concomitant]
  8. COLCHICINE [Concomitant]

REACTIONS (1)
  - TENDON RUPTURE [None]
